FAERS Safety Report 10428305 (Version 3)
Quarter: 2014Q4

REPORT INFORMATION
  Report Type: Spontaneous
  Country: US (occurrence: US)
  Receive Date: 20140903
  Receipt Date: 20141218
  Transmission Date: 20150528
  Serious: No
  Sender: FDA-Public Use
  Company Number: US-ASTRAZENECA-2014SE59018

PATIENT
  Age: 55 Year
  Sex: Female
  Weight: 54.4 kg

DRUGS (9)
  1. BLOPRESS [Suspect]
     Active Substance: CANDESARTAN CILEXETIL
     Indication: HYPERTENSION
     Route: 048
     Dates: start: 2009
  2. LOSARTAN POTASSIUM. [Suspect]
     Active Substance: LOSARTAN POTASSIUM
     Indication: HYPERTENSION
     Route: 065
     Dates: start: 201407
  3. OMEGA 3 [Concomitant]
     Active Substance: OMEGA-3 FATTY ACIDS
     Indication: CARDIAC DISORDER
     Dosage: UNKNOWN TID
     Route: 048
     Dates: start: 201309
  4. VITAMIN B [Concomitant]
     Active Substance: VITAMIN B
     Indication: STRESS
     Dosage: 4 CAP FULLS DAILY
     Route: 048
     Dates: start: 201309
  5. MULTIVITAMIN [Concomitant]
     Active Substance: VITAMINS
     Indication: ROUTINE HEALTH MAINTENANCE
     Dosage: 2 CAP FULLS DAILY
     Route: 048
     Dates: start: 201309
  6. BLOPRESS [Suspect]
     Active Substance: CANDESARTAN CILEXETIL
     Indication: HYPERTENSION
     Dosage: 8 MG IN THE MORNING, HALF OF AN 8 MG TABLET IN THE EVENING
     Route: 048
     Dates: end: 201407
  7. VITAMIN C [Concomitant]
     Active Substance: ASCORBIC ACID
     Indication: HYPERTENSION
     Dosage: 1 CAP FULL DAILY
     Route: 048
     Dates: start: 201309
  8. VITAMIN C [Concomitant]
     Active Substance: ASCORBIC ACID
     Indication: IMMUNOLOGY TEST
     Dosage: 1 CAP FULL DAILY
     Route: 048
     Dates: start: 201309
  9. OMEGA 3 [Concomitant]
     Active Substance: OMEGA-3 FATTY ACIDS
     Indication: BLOOD TRIGLYCERIDES
     Dosage: UNKNOWN TID
     Route: 048
     Dates: start: 201309

REACTIONS (13)
  - Alopecia [Not Recovered/Not Resolved]
  - Somnolence [Unknown]
  - Dry eye [Unknown]
  - Eye irritation [Unknown]
  - Stress [Not Recovered/Not Resolved]
  - Blood pressure inadequately controlled [Unknown]
  - Migraine [Not Recovered/Not Resolved]
  - Drug ineffective [Unknown]
  - Intentional product misuse [Unknown]
  - Off label use [Unknown]
  - Fatigue [Unknown]
  - Eye pain [Unknown]
  - Malaise [Unknown]

NARRATIVE: CASE EVENT DATE: 2014
